FAERS Safety Report 10182119 (Version 1)
Quarter: 2014Q2

REPORT INFORMATION
  Report Type: Spontaneous
  Country: GB (occurrence: GB)
  Receive Date: 20140520
  Receipt Date: 20140520
  Transmission Date: 20141212
  Serious: Yes (Other)
  Sender: FDA-Public Use
  Company Number: GB-009507513-1405GBR008849

PATIENT
  Age: 64 Year
  Sex: Female

DRUGS (2)
  1. LOSARTAN POTASSIUM [Suspect]
     Indication: HYPERTENSION
     Dosage: 25 MILLIGRAM DAILY
     Route: 048
     Dates: start: 20140307, end: 20140315
  2. BETAHISTINE [Concomitant]
     Indication: DIZZINESS
     Dosage: 24 MILLIGRAM DAILY
     Dates: start: 20130510

REACTIONS (7)
  - Loss of consciousness [Recovered/Resolved]
  - Syncope [Recovered/Resolved]
  - Presyncope [Recovered/Resolved]
  - Vomiting [Recovered/Resolved]
  - Alcohol interaction [Recovered/Resolved]
  - Urinary incontinence [Recovered/Resolved]
  - Hypotension [Recovered/Resolved]
